FAERS Safety Report 19816165 (Version 2)
Quarter: 2021Q4

REPORT INFORMATION
  Report Type: Spontaneous
  Country: JP (occurrence: JP)
  Receive Date: 20210909
  Receipt Date: 20211008
  Transmission Date: 20220303
  Serious: Yes (Other)
  Sender: FDA-Public Use
  Company Number: JP-DSPHARMA-2021DSP013317

PATIENT
  Age: 37 Year
  Sex: Male

DRUGS (11)
  1. LATUDA [Suspect]
     Active Substance: LURASIDONE HYDROCHLORIDE
     Indication: Bipolar I disorder
     Dosage: 40 MG, QD
     Route: 048
  2. LATUDA [Suspect]
     Active Substance: LURASIDONE HYDROCHLORIDE
     Dosage: 60 MG, QD
     Route: 048
  3. LATUDA [Suspect]
     Active Substance: LURASIDONE HYDROCHLORIDE
     Dosage: 40 MG, QD
     Route: 048
  4. VALPROATE SODIUM [Suspect]
     Active Substance: VALPROATE SODIUM
     Indication: Mania
     Dosage: 600 MG, QD
     Route: 048
  5. HALOPERIDOL [Suspect]
     Active Substance: HALOPERIDOL
     Indication: Product used for unknown indication
     Dosage: 1 MG, QD
     Route: 065
  6. HALOPERIDOL [Suspect]
     Active Substance: HALOPERIDOL
     Dosage: 3 MG, QD
     Route: 065
  7. BROTIZOLAM [Suspect]
     Active Substance: BROTIZOLAM
     Indication: Product used for unknown indication
     Dosage: 0.25 MG, AS NECESSARY
     Route: 048
  8. DAYVIGO [Suspect]
     Active Substance: LEMBOREXANT
     Indication: Product used for unknown indication
     Dosage: 5 MG, QD
     Route: 048
  9. LITHIUM CARBONATE [Concomitant]
     Active Substance: LITHIUM CARBONATE
     Indication: Mania
     Dosage: 900 MG, QD
     Route: 065
  10. QUETIAPINE FUMARATE [Concomitant]
     Active Substance: QUETIAPINE FUMARATE
     Indication: Mania
     Dosage: 300 MG, QD
     Route: 065
  11. BROMPERIDOL [Concomitant]
     Active Substance: BROMPERIDOL
     Dosage: 1 MG, AS NECESSARY
     Route: 065

REACTIONS (5)
  - Type 2 diabetes mellitus [Unknown]
  - Increased appetite [Unknown]
  - Sleep apnoea syndrome [Unknown]
  - Apathy [Unknown]
  - Prescribed overdose [Unknown]
